FAERS Safety Report 7793797-4 (Version None)
Quarter: 2011Q4

REPORT INFORMATION
  Report Type: 
  Country: None (occurrence: None)
  Receive Date: 20111003
  Receipt Date: 20110927
  Transmission Date: 20120403
  Serious: Yes (Hospitalization, Other)
  Sender: FDA-Public Use
  Company Number: PHHY2009US66553

PATIENT
  Sex: Female
  Weight: 50 kg

DRUGS (5)
  1. LAXATIVES [Concomitant]
  2. LYRICA [Concomitant]
  3. EXJADE [Suspect]
     Indication: IRON OVERLOAD
     Dosage: 1000 MG, DAILY
     Route: 048
     Dates: start: 20060101
  4. REVLIMID [Concomitant]
     Indication: MYELODYSPLASTIC SYNDROME
     Route: 048
     Dates: end: 20090601
  5. SYNTHROID [Concomitant]
     Indication: HYPOTHYROIDISM
     Route: 048

REACTIONS (4)
  - CONSTIPATION [None]
  - PYREXIA [None]
  - BLOOD CULTURE POSITIVE [None]
  - GASTROINTESTINAL INFECTION [None]
